FAERS Safety Report 8068036-X (Version None)
Quarter: 2012Q1

REPORT INFORMATION
  Report Type: 
  Country: None (occurrence: None)
  Receive Date: 20120124
  Receipt Date: 20110912
  Transmission Date: 20120608
  Serious: No
  Sender: FDA-Public Use
  Company Number: US-AMGEN-USASP2011046541

PATIENT
  Sex: Female

DRUGS (10)
  1. PLAVIX [Concomitant]
     Dosage: UNK MG, UNK
  2. QUINAPRIL [Concomitant]
     Dosage: UNK
  3. HYDROCHLOROTHIAZIDE [Concomitant]
     Dosage: UNK
  4. PROLIA [Suspect]
     Indication: OSTEOPOROSIS POSTMENOPAUSAL
     Dosage: 60 MG, Q6MO
     Dates: start: 20101008
  5. VITAMIN D [Concomitant]
     Dosage: UNK IU, UNK
  6. VITAMIN B-12 [Concomitant]
     Dosage: 1 MUG, UNK
  7. FAMOTIDINE [Concomitant]
     Dosage: UNK MG, UNK
  8. IMDUR [Concomitant]
     Dosage: UNK MG, UNK
  9. ASPIRIN [Concomitant]
     Dosage: UNK MG, UNK
  10. MIRALAX [Concomitant]
     Dosage: UNK

REACTIONS (1)
  - MYALGIA [None]
